FAERS Safety Report 11586706 (Version 1)
Quarter: 2015Q4

REPORT INFORMATION
  Report Type: Spontaneous
  Country: US (occurrence: US)
  Receive Date: 20151001
  Receipt Date: 20151001
  Transmission Date: 20160304
  Serious: Yes (Death, Other)
  Sender: FDA-Public Use
  Company Number: US-PFIZER INC-2015314367

PATIENT
  Age: 46 Year
  Sex: Male
  Weight: 59 kg

DRUGS (4)
  1. SUTENT [Suspect]
     Active Substance: SUNITINIB MALATE
     Indication: RENAL CANCER
     Dosage: 50 MG, 1X/DAY
     Route: 048
     Dates: start: 20150820, end: 20150827
  2. SUTENT [Suspect]
     Active Substance: SUNITINIB MALATE
     Indication: LUNG NEOPLASM MALIGNANT
  3. SUTENT [Suspect]
     Active Substance: SUNITINIB MALATE
     Indication: METASTATIC NEOPLASM
  4. SUTENT [Suspect]
     Active Substance: SUNITINIB MALATE
     Indication: CARDIAC NEOPLASM UNSPECIFIED

REACTIONS (5)
  - Cardiac neoplasm unspecified [Fatal]
  - Metastasis [Fatal]
  - Disease progression [Fatal]
  - Renal cancer [Fatal]
  - Lung neoplasm malignant [Fatal]
